FAERS Safety Report 10623268 (Version 3)
Quarter: 2014Q4

REPORT INFORMATION
  Report Type: Spontaneous
  Country: JP (occurrence: JP)
  Receive Date: 20141203
  Receipt Date: 20141229
  Transmission Date: 20150529
  Serious: Yes (Death, Hospitalization, Other)
  Sender: FDA-Public Use
  Company Number: JP-GLAXOSMITHKLINE-JP2014GSK029619

PATIENT
  Sex: Female
  Weight: 57 kg

DRUGS (9)
  1. HYCAMTIN [Suspect]
     Active Substance: TOPOTECAN HYDROCHLORIDE
     Indication: OVARIAN CANCER
     Dosage: 1.8 MG, QD
     Route: 042
     Dates: start: 20141021, end: 20141122
  2. TAKEPRON [Concomitant]
     Active Substance: LANSOPRAZOLE
     Dosage: 60 MG, QD
     Dates: start: 20141119, end: 20141127
  3. EBRANTIL [Concomitant]
     Active Substance: URAPIDIL
     Dosage: 30 MG, QD
     Route: 048
     Dates: start: 20140829, end: 20141124
  4. URSO [Concomitant]
     Active Substance: URSODIOL
     Dosage: 300 MG, QD
     Dates: start: 20141010, end: 20141124
  5. LOXONIN [Concomitant]
     Active Substance: LOXOPROFEN SODIUM
     Dosage: 180 MG, QD
     Route: 048
     Dates: end: 20141122
  6. TRAMAL [Concomitant]
     Active Substance: TRAMADOL
     Dosage: 100 MG, QD
     Dates: start: 20141118, end: 20141124
  7. MYSLEE [Concomitant]
     Active Substance: ZOLPIDEM TARTRATE
     Dosage: 5 MG, QD
     Dates: start: 20141104, end: 20141123
  8. NAUZELIN [Concomitant]
     Active Substance: DOMPERIDONE
     Dosage: 30 MG, QD
     Route: 048
     Dates: start: 20141021, end: 20141124
  9. MUCOSTA [Concomitant]
     Active Substance: REBAMIPIDE
     Dosage: 300 MG, QD
     Dates: end: 20141124

REACTIONS (1)
  - Gastrointestinal perforation [Fatal]
